FAERS Safety Report 8325501-5 (Version None)
Quarter: 2012Q2

REPORT INFORMATION
  Report Type: 
  Country: None (occurrence: None)
  Receive Date: 20120501
  Receipt Date: 20120419
  Transmission Date: 20120825
  Serious: Yes (Hospitalization)
  Sender: FDA-Public Use
  Company Number: JP-UCBSA-055924

PATIENT
  Age: 54 Year
  Sex: Female

DRUGS (6)
  1. CANDESARTAN CILEXETIL [Concomitant]
     Dosage: 4 MG, 1 DAY
     Route: 048
     Dates: end: 20120215
  2. XYZAL [Suspect]
     Indication: SEASONAL ALLERGY
     Route: 048
     Dates: start: 20120314
  3. TICLOPIDINE HYDROCHLORIDE [Concomitant]
     Indication: HYPERTENSION
     Route: 048
  4. CANDESARTAN CILEXETIL [Concomitant]
     Indication: HYPERTENSION
     Route: 048
     Dates: start: 20120215
  5. DEPAS [Concomitant]
     Dosage: DOSAGE FORM: POR
     Route: 048
  6. CANDESARTAN CILEXETIL AND HYDROCHLOROTHIAZIDE [Concomitant]
     Indication: HYPERTENSION
     Route: 048
     Dates: start: 20120215

REACTIONS (5)
  - SWELLING FACE [None]
  - ECZEMA [None]
  - ERYTHEMA [None]
  - CHEST PAIN [None]
  - NAUSEA [None]
